FAERS Safety Report 15695040 (Version 2)
Quarter: 2018Q4

REPORT INFORMATION
  Report Type: Report from Study
  Country: MX (occurrence: MX)
  Receive Date: 20181206
  Receipt Date: 20181218
  Transmission Date: 20190205
  Serious: Yes (Other)
  Sender: FDA-Public Use
  Company Number: PHHY2018MX174461

PATIENT
  Sex: Female
  Weight: 45 kg

DRUGS (2)
  1. EXFORGE [Suspect]
     Active Substance: AMLODIPINE BESYLATE\VALSARTAN
     Indication: HYPERTENSION
     Dosage: 1 DF, QD (AMLODIPINE 5 MG, VALSARTAN 160 MG)
     Route: 048
  2. ZOMETA [Suspect]
     Active Substance: ZOLEDRONIC ACID
     Indication: BONE DISORDER
     Dosage: 1 DF, Q3MO (EVERY 3 YEARS AGO)
     Route: 065

REACTIONS (4)
  - Spinal cord neoplasm [Recovering/Resolving]
  - Product use in unapproved indication [Unknown]
  - Breast cancer [Recovering/Resolving]
  - Haematemesis [Recovered/Resolved]
